FAERS Safety Report 7768562-4 (Version None)
Quarter: 2011Q3

REPORT INFORMATION
  Report Type: 
  Country: None (occurrence: None)
  Receive Date: 20110922
  Receipt Date: 20110629
  Transmission Date: 20111222
  Serious: Yes (Other)
  Sender: FDA-Public Use
  Company Number: US-ASTRAZENECA-2011SE37829

PATIENT
  Age: 45 Year
  Sex: Female

DRUGS (2)
  1. NEXIUM [Suspect]
     Route: 048
  2. SEROQUEL [Suspect]
     Indication: BIPOLAR DISORDER
     Route: 048

REACTIONS (13)
  - NAUSEA [None]
  - INFLUENZA LIKE ILLNESS [None]
  - SOCIAL AVOIDANT BEHAVIOUR [None]
  - MENTAL DISABILITY [None]
  - MENTAL IMPAIRMENT [None]
  - DRUG DOSE OMISSION [None]
  - ANXIETY [None]
  - MATERNAL EXPOSURE DURING PREGNANCY [None]
  - SUICIDAL IDEATION [None]
  - DEPRESSION [None]
  - POOR QUALITY SLEEP [None]
  - INCORRECT DOSE ADMINISTERED [None]
  - INSOMNIA [None]
